FAERS Safety Report 4948465-0 (Version None)
Quarter: 2006Q1

REPORT INFORMATION
  Report Type: 
  Country: None (occurrence: None)
  Receive Date: 20060314
  Receipt Date: 20060307
  Transmission Date: 20060701
  Serious: Yes (Hospitalization)
  Sender: FDA-Public Use
  Company Number: TCI2006A01023

PATIENT

DRUGS (3)
  1. LANSAP 800 (LANSOPRAZOLE, CLARITHROMYCIN, AMOXICILLIN) (PREPARATION FO [Suspect]
     Indication: DUODENAL ULCER
     Dosage: 1 CARD (0,5 CARD, 2 IN 1 D) PER ORAL
     Route: 048
     Dates: end: 20060303
  2. LANSAP 800 (LANSOPRAZOLE, CLARITHROMYCIN, AMOXICILLIN) (PREPARATION FO [Suspect]
     Indication: GASTRIC ULCER
     Dosage: 1 CARD (0,5 CARD, 2 IN 1 D) PER ORAL
     Route: 048
     Dates: end: 20060303
  3. LANSAP 800 (LANSOPRAZOLE, CLARITHROMYCIN, AMOXICILLIN) (PREPARATION FO [Suspect]
     Indication: HELICOBACTER INFECTION
     Dosage: 1 CARD (0,5 CARD, 2 IN 1 D) PER ORAL
     Route: 048
     Dates: end: 20060303

REACTIONS (1)
  - RENAL FAILURE ACUTE [None]
